FAERS Safety Report 6807576-5 (Version None)
Quarter: 2010Q2

REPORT INFORMATION
  Report Type: 
  Country: None (occurrence: None)
  Receive Date: 20100629
  Receipt Date: 20081031
  Transmission Date: 20101027
  Serious: No
  Sender: FDA-Public Use
  Company Number: US-PFIZER INC-2008083025

PATIENT
  Sex: Male
  Weight: 68.181 kg

DRUGS (6)
  1. VIAGRA [Suspect]
     Indication: MULTIPLE SCLEROSIS
     Dates: start: 20080101
  2. VIAGRA [Suspect]
     Indication: OFF LABEL USE
  3. ALL OTHER THERAPEUTIC PRODUCTS [Concomitant]
  4. HYDROCHLOROTHIAZIDE [Concomitant]
  5. MUSCLE RELAXANTS [Concomitant]
  6. REBIF [Concomitant]
     Indication: MULTIPLE SCLEROSIS
     Dates: end: 20070601

REACTIONS (1)
  - DRUG INEFFECTIVE FOR UNAPPROVED INDICATION [None]
